FAERS Safety Report 8482747-3 (Version None)
Quarter: 2012Q3

REPORT INFORMATION
  Report Type: 
  Country: None (occurrence: None)
  Receive Date: 20120702
  Receipt Date: 20120607
  Transmission Date: 20120928
  Serious: No
  Sender: FDA-Public Use
  Company Number: US-BAYER-2012-059115

PATIENT
  Sex: Female

DRUGS (1)
  1. FINACEA [Suspect]

REACTIONS (2)
  - PARAESTHESIA [None]
  - PAIN [None]
